FAERS Safety Report 18413128 (Version 2)
Quarter: 2021Q4

REPORT INFORMATION
  Report Type: Report from Study
  Country: CA (occurrence: CA)
  Receive Date: 20201022
  Receipt Date: 20211216
  Transmission Date: 20220303
  Serious: Yes (Hospitalization, Other)
  Sender: FDA-Public Use
  Company Number: CA-BAUSCH-BL-2020-029891

PATIENT
  Sex: Male
  Weight: 38 kg

DRUGS (15)
  1. ALBUTEROL [Suspect]
     Active Substance: ALBUTEROL
     Indication: Product used for unknown indication
     Route: 065
  2. HYDROCORTISONE [Suspect]
     Active Substance: HYDROCORTISONE
     Indication: Product used for unknown indication
     Route: 065
  3. HYDROCORTISONE [Suspect]
     Active Substance: HYDROCORTISONE
     Route: 065
  4. MAGNESIUM SULFATE [Suspect]
     Active Substance: MAGNESIUM SULFATE
     Indication: Product used for unknown indication
     Route: 065
  5. ADVAIR HFA [Suspect]
     Active Substance: FLUTICASONE PROPIONATE\SALMETEROL XINAFOATE
     Indication: Product used for unknown indication
     Route: 065
  6. ALVESCO [Suspect]
     Active Substance: CICLESONIDE
     Indication: Product used for unknown indication
     Dosage: AEROSOL, METERED DOSE
     Route: 065
  7. LANSOPRAZOLE [Suspect]
     Active Substance: LANSOPRAZOLE
     Indication: Product used for unknown indication
     Dosage: DELAYED RELEASE CAPSULE
     Route: 065
  8. PREDNISONE [Suspect]
     Active Substance: PREDNISONE
     Indication: Product used for unknown indication
     Route: 065
  9. SPIRIVA RESPIMAT [Suspect]
     Active Substance: TIOTROPIUM BROMIDE
     Indication: Product used for unknown indication
     Dosage: ORAL INHALATION WITH RESPIMAT INHALER ONLY. 5G/DOSE, 2 EVERY 1 DAYS
     Route: 065
  10. SYMBICORT [Suspect]
     Active Substance: BUDESONIDE\FORMOTEROL FUMARATE DIHYDRATE
     Indication: Product used for unknown indication
     Route: 065
  11. VENTOLIN [Suspect]
     Active Substance: ALBUTEROL SULFATE
     Indication: Product used for unknown indication
     Route: 065
  12. VITAMIN D [Suspect]
     Active Substance: VITAMIN D NOS
     Indication: Product used for unknown indication
     Route: 065
  13. BUDESONIDE\FORMOTEROL FUMARATE [Suspect]
     Active Substance: BUDESONIDE\FORMOTEROL FUMARATE
     Indication: Product used for unknown indication
     Route: 065
  14. TIOTROPIUM BROMIDE [Suspect]
     Active Substance: TIOTROPIUM BROMIDE
     Indication: Product used for unknown indication
     Route: 065
  15. ALBUTEROL SULFATE [Suspect]
     Active Substance: ALBUTEROL SULFATE
     Indication: Product used for unknown indication
     Route: 065

REACTIONS (24)
  - Asthma [Recovered/Resolved]
  - Bronchiectasis [Recovered/Resolved]
  - Disease recurrence [Recovered/Resolved]
  - Dyspnoea [Recovered/Resolved]
  - Eczema [Recovered/Resolved]
  - Erythema [Recovered/Resolved]
  - Gingival disorder [Recovered/Resolved]
  - Obstructive airways disorder [Recovered/Resolved]
  - Lip swelling [Recovered/Resolved]
  - Loss of personal independence in daily activities [Recovered/Resolved]
  - Oral disorder [Recovered/Resolved]
  - Respiratory arrest [Recovered/Resolved]
  - Skin irritation [Recovered/Resolved]
  - Skin lesion [Recovered/Resolved]
  - Sleep disorder due to a general medical condition [Recovered/Resolved]
  - Adrenal suppression [Recovered/Resolved]
  - Adrenal insufficiency [Recovered/Resolved]
  - Respiratory disorder [Recovered/Resolved]
  - Back pain [Recovered/Resolved]
  - Wheezing [Recovered/Resolved]
  - Angioedema [Recovered/Resolved]
  - Rash [Recovered/Resolved]
  - Urticaria [Recovered/Resolved]
  - Therapeutic product effect incomplete [Unknown]
